FAERS Safety Report 6640245-3 (Version None)
Quarter: 2010Q1

REPORT INFORMATION
  Report Type: 
  Country: None (occurrence: None)
  Receive Date: 20100318
  Receipt Date: 20100312
  Transmission Date: 20100710
  Serious: Yes (Death, Hospitalization)
  Sender: FDA-Public Use
  Company Number: FR-CELGENEUS-056-C5013-10030346

PATIENT
  Sex: Male
  Weight: 56 kg

DRUGS (5)
  1. CC-5013 [Suspect]
     Indication: MULTIPLE MYELOMA
     Route: 048
     Dates: start: 20100223, end: 20100302
  2. DEXAMETHASONE [Suspect]
     Indication: MULTIPLE MYELOMA
     Route: 065
     Dates: start: 20100223, end: 20100302
  3. COUMADIN [Concomitant]
     Indication: THROMBOSIS PROPHYLAXIS
     Route: 048
     Dates: start: 20100223, end: 20100302
  4. LAMALINE [Concomitant]
     Indication: CONSTIPATION
     Route: 048
     Dates: start: 20100113, end: 20100302
  5. PARACETAMOL [Concomitant]
     Indication: BONE PAIN
     Route: 048
     Dates: start: 20100113, end: 20100302

REACTIONS (1)
  - SEPSIS [None]
